FAERS Safety Report 8634023 (Version 2)
Quarter: 2013Q2

REPORT INFORMATION
  Report Type: Spontaneous
  Country: AR (occurrence: AR)
  Receive Date: 20120626
  Receipt Date: 20130625
  Transmission Date: 20140414
  Serious: Yes (Death, Hospitalization, Other)
  Sender: FDA-Public Use
  Company Number: AR-BRISTOL-MYERS SQUIBB COMPANY-16689416

PATIENT
  Age: 78 Year
  Sex: Female

DRUGS (13)
  1. ORENCIA [Suspect]
     Dosage: LAST INF: 9APR12,26MAR13
     Dates: start: 20080422
  2. METHOTREXATE [Concomitant]
     Indication: RHEUMATOID ARTHRITIS
     Route: 048
     Dates: start: 1993, end: 2012
  3. FOLIC ACID [Concomitant]
     Route: 048
  4. RABEPRAZOLE [Concomitant]
     Route: 048
  5. NIMODIPINE [Concomitant]
     Route: 048
  6. HYDROCHLOROTHIAZIDE [Concomitant]
     Route: 048
  7. IBANDRONATE [Concomitant]
     Route: 048
  8. RISPERIDONE [Concomitant]
     Route: 048
  9. PREDNISONE [Concomitant]
     Route: 048
  10. CLOPIDOGREL BISULFATE [Concomitant]
     Route: 048
  11. LEVOTHYROXIN [Concomitant]
     Route: 048
  12. ASPIRIN [Concomitant]
     Route: 048
  13. TRAMADOL [Concomitant]
     Route: 048

REACTIONS (5)
  - Aspiration [Fatal]
  - Cerebrovascular accident [Unknown]
  - Cough [Unknown]
  - Vomiting [Unknown]
  - Loss of consciousness [Unknown]
